FAERS Safety Report 25042576 (Version 1)
Quarter: 2025Q1

REPORT INFORMATION
  Report Type: Report from Study
  Country: US (occurrence: US)
  Receive Date: 20250305
  Receipt Date: 20250305
  Transmission Date: 20250408
  Serious: Yes (Other)
  Sender: ABBVIE
  Company Number: US-ABBVIE-6083956

PATIENT
  Age: 90 Year
  Sex: Female

DRUGS (1)
  1. HUMIRA [Suspect]
     Active Substance: ADALIMUMAB
     Indication: Product used for unknown indication
     Route: 058
     Dates: end: 202412

REACTIONS (9)
  - Dialysis [Unknown]
  - Condition aggravated [Not Recovered/Not Resolved]
  - Dry skin [Not Recovered/Not Resolved]
  - Cerebrovascular accident [Unknown]
  - Pruritus [Not Recovered/Not Resolved]
  - Discomfort [Unknown]
  - Musculoskeletal stiffness [Unknown]
  - Pain [Unknown]
  - Skin plaque [Unknown]

NARRATIVE: CASE EVENT DATE: 20241201
